FAERS Safety Report 12300316 (Version 1)
Quarter: 2016Q2

REPORT INFORMATION
  Report Type: Spontaneous
  Country: PY (occurrence: PY)
  Receive Date: 20160425
  Receipt Date: 20160425
  Transmission Date: 20160815
  Serious: Yes (Hospitalization)
  Sender: FDA-Public Use
  Company Number: PY-ELI_LILLY_AND_COMPANY-PY201604004874

PATIENT
  Age: 0 Year
  Weight: 3.5 kg

DRUGS (8)
  1. LISPRO [Suspect]
     Active Substance: INSULIN LISPRO
     Indication: TYPE 2 DIABETES MELLITUS
     Dosage: 4 U, BEFORE EVERY MEAL
     Route: 064
     Dates: start: 201502, end: 201508
  2. INSULIN HUMAN [Suspect]
     Active Substance: INSULIN HUMAN
     Indication: TYPE 2 DIABETES MELLITUS
     Dosage: 14 U, QD
     Route: 064
     Dates: start: 201502, end: 201508
  3. LISPRO [Suspect]
     Active Substance: INSULIN LISPRO
     Indication: TYPE 2 DIABETES MELLITUS
     Dosage: 4 U, BEFORE EVERY MEAL
     Route: 064
     Dates: start: 201502, end: 201508
  4. INSULIN HUMAN [Suspect]
     Active Substance: INSULIN HUMAN
     Indication: TYPE 2 DIABETES MELLITUS
     Dosage: 14 U, QD
     Route: 064
     Dates: start: 201502, end: 201508
  5. INSULIN HUMAN [Suspect]
     Active Substance: INSULIN HUMAN
     Dosage: 6 U, QD
     Route: 064
     Dates: start: 201502, end: 201508
  6. METFORMIN [Concomitant]
     Active Substance: METFORMIN HYDROCHLORIDE
     Indication: PRODUCT USED FOR UNKNOWN INDICATION
     Dosage: UNK UNK, UNKNOWN
     Route: 064
  7. INSULIN HUMAN [Suspect]
     Active Substance: INSULIN HUMAN
     Dosage: 6 U, QD
     Route: 064
     Dates: start: 201502, end: 201508
  8. METFORMIN [Concomitant]
     Active Substance: METFORMIN HYDROCHLORIDE
     Indication: PRODUCT USED FOR UNKNOWN INDICATION
     Dosage: UNK UNK, UNKNOWN
     Route: 064

REACTIONS (5)
  - Blood glucose decreased [Recovered/Resolved]
  - Cardiac murmur [Recovered/Resolved]
  - Premature baby [Recovered/Resolved]
  - Red blood cell count increased [Recovered/Resolved]
  - Foetal exposure during pregnancy [Recovered/Resolved]

NARRATIVE: CASE EVENT DATE: 201502
